FAERS Safety Report 15895344 (Version 2)
Quarter: 2019Q1

REPORT INFORMATION
  Report Type: Report from Study
  Country: US (occurrence: US)
  Receive Date: 20190131
  Receipt Date: 20190205
  Transmission Date: 20190417
  Serious: Yes (Death, Other)
  Sender: FDA-Public Use
  Company Number: US-BAYER-2018-228697

PATIENT
  Age: 66 Year
  Sex: Male

DRUGS (1)
  1. NEXAVAR [Suspect]
     Active Substance: SORAFENIB
     Indication: HEPATOCELLULAR CARCINOMA
     Dosage: 400 MG, BID
     Route: 048
     Dates: start: 20181204

REACTIONS (15)
  - Death [Fatal]
  - General physical health deterioration [None]
  - Abdominal pain [Recovering/Resolving]
  - Weight decreased [None]
  - Constipation [Recovering/Resolving]
  - Headache [None]
  - Abdominal distension [None]
  - Abdominal pain [None]
  - Faeces discoloured [None]
  - Product dose omission [None]
  - Food refusal [None]
  - Fluid intake reduced [None]
  - Moaning [None]
  - Agitation [None]
  - Decreased appetite [None]

NARRATIVE: CASE EVENT DATE: 201812
